FAERS Safety Report 6703811-2 (Version None)
Quarter: 2010Q2

REPORT INFORMATION
  Report Type: 
  Country: None (occurrence: None)
  Receive Date: 20100430
  Receipt Date: 20100420
  Transmission Date: 20101027
  Serious: Yes (Death, Life-Threatening)
  Sender: FDA-Public Use
  Company Number: FR-PFIZER INC-2010043252

PATIENT
  Age: 65 Year
  Sex: Male

DRUGS (17)
  1. ATARAX [Suspect]
     Dosage: 25 MG, DAILY
     Route: 048
  2. CISPLATIN [Suspect]
     Indication: CHEMOTHERAPY
     Dosage: 70 MG/M2, UNK
     Route: 042
     Dates: start: 20090715, end: 20090715
  3. CISPLATIN [Suspect]
     Dosage: 70 MG/M2, UNK
     Route: 042
     Dates: start: 20090805, end: 20090805
  4. CISPLATIN [Suspect]
     Dosage: 70 MG/M2, UNK
     Route: 042
     Dates: start: 20090826, end: 20090826
  5. CISPLATIN [Suspect]
     Dosage: 70 MG/M2, UNK
     Route: 042
     Dates: start: 20091019, end: 20091019
  6. ALIMTA [Suspect]
     Indication: CHEMOTHERAPY
     Dosage: 500 MG/M2, UNK
     Route: 042
     Dates: start: 20090715, end: 20090715
  7. ALIMTA [Suspect]
     Dosage: 500 MG/M2, UNK
     Route: 042
     Dates: start: 20090805, end: 20090805
  8. ALIMTA [Suspect]
     Dosage: 500 MG/M2, UNK
     Route: 042
     Dates: start: 20090826, end: 20090826
  9. ALIMTA [Suspect]
     Dosage: 500 MG/M2, UNK
     Route: 042
     Dates: start: 20091019, end: 20091019
  10. FORLAX [Suspect]
     Dosage: 2 DF, UNK
     Route: 048
  11. TOPALGIC [Suspect]
     Dosage: 100 MG, 2X/DAY
     Route: 048
  12. LEXOMIL [Suspect]
     Dosage: 9 MG, UNK
     Route: 048
  13. LEXOMIL [Suspect]
     Dosage: 6 MG, UNK
     Route: 048
  14. LEXOMIL [Suspect]
     Dosage: 0.5 DF, 3X/DAY
     Route: 048
  15. VENTOLIN [Suspect]
     Route: 055
  16. ATROVENT [Suspect]
     Route: 055
  17. PULMICORT [Suspect]
     Route: 055

REACTIONS (2)
  - ACUTE RESPIRATORY DISTRESS SYNDROME [None]
  - INTERSTITIAL LUNG DISEASE [None]
